FAERS Safety Report 19984166 (Version 1)
Quarter: 2021Q4

REPORT INFORMATION
  Report Type: Spontaneous
  Country: CA (occurrence: CA)
  Receive Date: 20211021
  Receipt Date: 20211021
  Transmission Date: 20220304
  Serious: Yes (Other)
  Sender: FDA-Public Use
  Company Number: CA-TAKEDA-2021TUS063862

PATIENT

DRUGS (4)
  1. CUVITRU [Suspect]
     Active Substance: HUMAN IMMUNOGLOBULIN G
     Indication: Infertility
     Dosage: 12 GRAM, 1/WEEK
     Route: 058
  2. CUVITRU [Suspect]
     Active Substance: HUMAN IMMUNOGLOBULIN G
     Indication: In vitro fertilisation
  3. FRAGMIN [Suspect]
     Active Substance: DALTEPARIN SODIUM
     Indication: In vitro fertilisation
     Dosage: UNK
     Route: 065
  4. ASPIRIN [Concomitant]
     Active Substance: ASPIRIN
     Route: 065

REACTIONS (13)
  - Disturbance in attention [Unknown]
  - Drug interaction [Unknown]
  - Immune-mediated adverse reaction [Unknown]
  - Irritability [Unknown]
  - Mental disorder [Unknown]
  - Neuralgia [Unknown]
  - Vascular pain [Unknown]
  - Vasculitis [Unknown]
  - Muscle twitching [Unknown]
  - Back pain [Unknown]
  - Dizziness [Unknown]
  - Fatigue [Unknown]
  - Headache [Unknown]
